FAERS Safety Report 8248836-3 (Version None)
Quarter: 2012Q2

REPORT INFORMATION
  Report Type: 
  Country: None (occurrence: None)
  Receive Date: 20120401
  Receipt Date: 20120321
  Transmission Date: 20120825
  Serious: Yes (Other)
  Sender: FDA-Public Use
  Company Number: PHHY2012BR025497

PATIENT
  Sex: Female

DRUGS (2)
  1. GLUCOSAMINE W/CHONDROITIN [Suspect]
     Dosage: UNK UKN, UNK
     Dates: start: 20040101
  2. MIACALCIN [Suspect]
     Indication: MINERAL SUPPLEMENTATION
     Dosage: UNK UKN, UNK
     Dates: start: 19890101

REACTIONS (5)
  - OSTEOPOROSIS [None]
  - FEELING ABNORMAL [None]
  - OSTEOARTHRITIS [None]
  - NONSPECIFIC REACTION [None]
  - PATHOLOGICAL FRACTURE [None]
